FAERS Safety Report 8993568 (Version 3)
Quarter: 2013Q2

REPORT INFORMATION
  Report Type: Report from Study
  Country: DE (occurrence: DE)
  Receive Date: 20130102
  Receipt Date: 20130412
  Transmission Date: 20140414
  Serious: Yes (Other)
  Sender: FDA-Public Use
  Company Number: DE-ROCHE-603481

PATIENT
  Age: 77 Year
  Sex: Female

DRUGS (5)
  1. BEVACIZUMAB [Suspect]
     Indication: RETINAL HAEMORRHAGE
     Dosage: 0.5ML
     Route: 031
  2. ALTEPLASE [Suspect]
     Indication: RETINAL HAEMORRHAGE
     Route: 050
  3. SULFUR HEXAFLUORIDE GAS [Suspect]
     Indication: RETINAL HAEMORRHAGE
     Dosage: DRUG REPORTED AS SF6 (SULFUR HEXAFLUORIDE). 0.3-0.4 ML IN EACH EYE
     Route: 031
  4. ACETYLSALICYLIC ACID [Concomitant]
  5. CHLORAMPHENICOL [Concomitant]

REACTIONS (2)
  - Intraocular pressure increased [Unknown]
  - Retinal vascular disorder [Unknown]
